FAERS Safety Report 11258148 (Version 2)
Quarter: 2015Q3

REPORT INFORMATION
  Report Type: Report from Study
  Country: UY (occurrence: UY)
  Receive Date: 20150710
  Receipt Date: 20150721
  Transmission Date: 20151125
  Serious: Yes (Hospitalization, Other)
  Sender: FDA-Public Use
  Company Number: UY-ABBVIE-15K-168-1375425-00

PATIENT
  Age: 29 Year
  Sex: Female

DRUGS (3)
  1. HUMIRA [Suspect]
     Active Substance: ADALIMUMAB
     Route: 058
     Dates: start: 201505, end: 20150601
  2. HUMIRA [Suspect]
     Active Substance: ADALIMUMAB
     Indication: COLITIS ULCERATIVE
     Route: 058
     Dates: start: 20140915, end: 201505
  3. ENOXAPARIN [Concomitant]
     Active Substance: ENOXAPARIN
     Indication: CONGENITAL HYPERCOAGULATION

REACTIONS (7)
  - Leg amputation [Unknown]
  - Crohn^s disease [Not Recovered/Not Resolved]
  - Drug ineffective [Not Recovered/Not Resolved]
  - Pyelonephritis [Recovered/Resolved]
  - Haemoglobin decreased [Unknown]
  - Urinary tract infection [Not Recovered/Not Resolved]
  - Cardiac ventricular thrombosis [Unknown]

NARRATIVE: CASE EVENT DATE: 201501
